FAERS Safety Report 26209386 (Version 1)
Quarter: 2025Q4

REPORT INFORMATION
  Report Type: Report from Study
  Country: IN (occurrence: IN)
  Receive Date: 20251229
  Receipt Date: 20251229
  Transmission Date: 20260117
  Serious: Yes (Other)
  Sender: PFIZER
  Company Number: IN-PFIZER INC-PV202400109746

PATIENT
  Age: 69 Year
  Sex: Female
  Weight: 70.8 kg

DRUGS (4)
  1. LORLATINIB [Suspect]
     Active Substance: LORLATINIB
     Indication: Non-small cell lung cancer recurrent
     Dosage: 100 MG, 1X/DAY (1 TAB DAILY AFTER FOOD TO CONTINUE)
     Route: 048
     Dates: start: 20240712
  2. NITROFURANTOIN [Concomitant]
     Active Substance: NITROFURANTOIN
     Dosage: 100 MG, 2X/DAY
     Route: 048
  3. ROZAVEL [Concomitant]
     Dosage: 20 MG, DAILY (AFTER DINNER TO CONTINUE, HS)
  4. ROZAVEL [Concomitant]
     Dosage: 10 MG, 1X/DAY (AT BEDTIME, DAILY)
     Route: 048

REACTIONS (3)
  - Optic atrophy [Unknown]
  - Decreased appetite [Unknown]
  - Pain [Unknown]

NARRATIVE: CASE EVENT DATE: 20240101
